FAERS Safety Report 4998278-9 (Version None)
Quarter: 2006Q2

REPORT INFORMATION
  Report Type: 
  Country: None (occurrence: None)
  Receive Date: 20060508
  Receipt Date: 20060420
  Transmission Date: 20061013
  Serious: No
  Sender: FDA-Public Use
  Company Number: 2006-00744

PATIENT
  Age: 57 Year
  Sex: Male

DRUGS (8)
  1. VELCADE [Suspect]
     Indication: MULTIPLE MYELOMA
     Dosage: 1.30 MG/M2,
     Dates: start: 20051220, end: 20051230
  2. AREDIA [Concomitant]
  3. NEXIUM [Concomitant]
  4. INSULIN [Concomitant]
  5. ATENOLOL [Concomitant]
  6. LIPITOR [Concomitant]
  7. DIOVAN [Concomitant]
  8. ECOTRIN (ACETYLSALICYLIC ACID) [Concomitant]

REACTIONS (2)
  - RASH [None]
  - WHEEZING [None]
